FAERS Safety Report 25681431 (Version 1)
Quarter: 2025Q3

REPORT INFORMATION
  Report Type: Report from Study
  Country: CN (occurrence: CN)
  Receive Date: 20250814
  Receipt Date: 20250814
  Transmission Date: 20251021
  Serious: Yes (Hospitalization, Other)
  Sender: EISAI
  Company Number: CN-Eisai-EC-2025-194956

PATIENT
  Age: 79 Year
  Sex: Male

DRUGS (6)
  1. LENVATINIB [Suspect]
     Active Substance: LENVATINIB
     Indication: Hepatic cancer
     Dates: start: 202309, end: 2024
  2. LENVATINIB [Suspect]
     Active Substance: LENVATINIB
     Dates: start: 2024, end: 202410
  3. LENVATINIB [Suspect]
     Active Substance: LENVATINIB
     Dates: start: 202504, end: 202504
  4. LENVATINIB [Suspect]
     Active Substance: LENVATINIB
     Dates: start: 202412, end: 202503
  5. KEYTRUDA [Suspect]
     Active Substance: PEMBROLIZUMAB
     Indication: Hepatic cancer
     Dates: end: 202410
  6. KEYTRUDA [Suspect]
     Active Substance: PEMBROLIZUMAB
     Dates: start: 202412

REACTIONS (4)
  - Ascites [Unknown]
  - Hepatic cirrhosis [Unknown]
  - Gingival bleeding [Unknown]
  - Epistaxis [Unknown]

NARRATIVE: CASE EVENT DATE: 20240601
